FAERS Safety Report 8080732-7 (Version None)
Quarter: 2012Q1

REPORT INFORMATION
  Report Type: 
  Country: None (occurrence: None)
  Receive Date: 20120130
  Receipt Date: 20120124
  Transmission Date: 20120608
  Serious: Yes (Death, Other)
  Sender: FDA-Public Use
  Company Number: PHHY2011AR101642

PATIENT
  Age: 55 Year
  Sex: Male

DRUGS (3)
  1. ANTINEURITICS [Concomitant]
  2. ANALGESICS [Concomitant]
  3. TASIGNA [Suspect]
     Route: 048

REACTIONS (8)
  - SEPSIS [None]
  - PNEUMONIA [None]
  - RENAL FAILURE [None]
  - NEUROPATHY PERIPHERAL [None]
  - NEURALGIA [None]
  - MULTI-ORGAN FAILURE [None]
  - FATIGUE [None]
  - RESPIRATORY FAILURE [None]
